FAERS Safety Report 21564702 (Version 5)
Quarter: 2022Q4

REPORT INFORMATION
  Report Type: Report from Study
  Country: US (occurrence: US)
  Receive Date: 20221108
  Receipt Date: 20221215
  Transmission Date: 20230112
  Serious: Yes (Hospitalization)
  Sender: FDA-Public Use
  Company Number: US-INSMED, INC.-2022-03112-US

PATIENT
  Sex: Female

DRUGS (1)
  1. ARIKAYCE [Suspect]
     Active Substance: AMIKACIN
     Indication: Product used for unknown indication
     Dosage: 590 MILLIGRAM, QD
     Route: 055
     Dates: start: 20221020

REACTIONS (8)
  - Hospitalisation [Unknown]
  - Faeces discoloured [Unknown]
  - Salivary hypersecretion [Unknown]
  - Chest discomfort [Unknown]
  - Therapy interrupted [Unknown]
  - Incorrect product administration duration [Unknown]
  - Device issue [Unknown]
  - Accidental underdose [Unknown]

NARRATIVE: CASE EVENT DATE: 20220101
